FAERS Safety Report 5761350-X (Version None)
Quarter: 2008Q2

REPORT INFORMATION
  Report Type: 
  Country: None (occurrence: None)
  Receive Date: 20080527
  Receipt Date: 20080206
  Transmission Date: 20081010
  Serious: Yes (Hospitalization, Disabling)
  Sender: FDA-Public Use
  Company Number: LUP-0221

PATIENT
  Age: 59 Year
  Sex: Male

DRUGS (2)
  1. MELOXICAM [Suspect]
     Indication: ARTHRITIS
     Dosage: ORAL
     Route: 048
     Dates: start: 20071101, end: 20071217
  2. ACETAMINOPHEN [Concomitant]

REACTIONS (2)
  - ABDOMINAL PAIN [None]
  - GASTRIC ULCER [None]
